FAERS Safety Report 13128293 (Version 2)
Quarter: 2017Q2

REPORT INFORMATION
  Report Type: Spontaneous
  Country: DE (occurrence: DE)
  Receive Date: 20170118
  Receipt Date: 20170518
  Transmission Date: 20170830
  Serious: Yes (Hospitalization, Other)
  Sender: FDA-Public Use
  Company Number: DE-SA-2017SA006842

PATIENT
  Age: 65 Year
  Sex: Female
  Weight: 88 kg

DRUGS (12)
  1. ACLASTA [Concomitant]
     Active Substance: ZOLEDRONIC ACID
     Dosage: 1 DF EVERY 1 YEAR?INFUSION
     Route: 041
     Dates: start: 201311, end: 201611
  2. SALBUTAMOL [Concomitant]
     Active Substance: ALBUTEROL
     Route: 065
  3. SULFASALAZINE. [Concomitant]
     Active Substance: SULFASALAZINE
     Dosage: 1-0-2
     Route: 065
     Dates: start: 20161215
  4. LEFLUNOMIDE. [Suspect]
     Active Substance: LEFLUNOMIDE
     Indication: RHEUMATOID ARTHRITIS
     Route: 048
     Dates: start: 201410
  5. NOVAMINSULFON [Concomitant]
     Active Substance: METAMIZOLE
     Indication: PAIN
     Dosage: UPTO 4X1
     Route: 048
  6. LEFLUNOMIDE. [Suspect]
     Active Substance: LEFLUNOMIDE
     Indication: RHEUMATOID ARTHRITIS
     Route: 048
     Dates: start: 201605, end: 201611
  7. SULFASALAZINE. [Concomitant]
     Active Substance: SULFASALAZINE
     Dosage: 1-0-2
     Route: 065
     Dates: start: 20161208
  8. PREDNISOLONE. [Concomitant]
     Active Substance: PREDNISOLONE
     Indication: RHEUMATOID ARTHRITIS
     Route: 048
  9. DEKRISTOL [Concomitant]
     Active Substance: CHOLECALCIFEROL
     Indication: PROPHYLAXIS
     Route: 048
  10. ASPIRIN. [Concomitant]
     Active Substance: ASPIRIN
     Indication: CEREBRAL ARTERIOSCLEROSIS
     Route: 048
  11. L-THYROXIN [Concomitant]
     Active Substance: LEVOTHYROXINE SODIUM
     Dosage: 88 MCG
     Route: 065
  12. ATORVASTATIN [Concomitant]
     Active Substance: ATORVASTATIN
     Indication: HYPERCHOLESTEROLAEMIA
     Route: 048

REACTIONS (2)
  - Fracture delayed union [Not Recovered/Not Resolved]
  - Pseudarthrosis [Not Recovered/Not Resolved]

NARRATIVE: CASE EVENT DATE: 201605
